FAERS Safety Report 15117411 (Version 1)
Quarter: 2018Q3

REPORT INFORMATION
  Report Type: Spontaneous
  Country: DE (occurrence: DE)
  Receive Date: 20180706
  Receipt Date: 20180706
  Transmission Date: 20181010
  Serious: Yes (Death, Hospitalization)
  Sender: FDA-Public Use
  Company Number: DE-MYLANLABS-2018M1048414

PATIENT
  Sex: Male

DRUGS (5)
  1. METAMIZOLE [Suspect]
     Active Substance: METAMIZOLE
     Indication: PAIN
     Dosage: 1?1?1?1
     Route: 065
  2. RAMIPRIL/HYDROCHLOORTHIAZIDE [Suspect]
     Active Substance: HYDROCHLOROTHIAZIDE\RAMIPRIL
     Indication: HYPERTENSION
     Dosage: AT 1?0?0.5
     Route: 065
  3. PANTOPRAZOLE [Concomitant]
     Active Substance: PANTOPRAZOLE
     Indication: GASTRIC DISORDER
     Dosage: 1?0?0
     Route: 065
  4. DICLOFENAC [Suspect]
     Active Substance: DICLOFENAC
     Indication: PROPHYLAXIS
     Dosage: 1?0?1. RECOMMENDED FOR TWO WEEKS POSTOPERATIVELY
     Route: 065
  5. BISOPROLOL [Concomitant]
     Active Substance: BISOPROLOL
     Indication: HYPERTENSION
     Dosage: 1?0?0
     Route: 065

REACTIONS (6)
  - Multiple organ dysfunction syndrome [Fatal]
  - Septic shock [Fatal]
  - Pancytopenia [Not Recovered/Not Resolved]
  - Agranulocytosis [Fatal]
  - Leptotrichia infection [Not Recovered/Not Resolved]
  - Bacterial infection [Not Recovered/Not Resolved]
